FAERS Safety Report 15298565 (Version 1)
Quarter: 2018Q3

REPORT INFORMATION
  Report Type: Spontaneous
  Country: FR (occurrence: FR)
  Receive Date: 20180820
  Receipt Date: 20180820
  Transmission Date: 20181010
  Serious: Yes (Death)
  Sender: FDA-Public Use
  Company Number: FR-PURDUE PHARMA-GBR-2015-0030899

PATIENT
  Sex: Male

DRUGS (9)
  1. OXYNORM SOLUTION INJECTABLE [Suspect]
     Active Substance: OXYCODONE HYDROCHLORIDE
     Indication: CANCER PAIN
     Dosage: 14 MG, Q1H WITH A BOLUS OF 20MG, PERIOD OF 45MIN
     Route: 042
  2. OXYNORM SOLUTION INJECTABLE [Suspect]
     Active Substance: OXYCODONE HYDROCHLORIDE
     Dosage: 25 MG, UNK
     Route: 065
  3. OXYNORM SOLUTION INJECTABLE [Suspect]
     Active Substance: OXYCODONE HYDROCHLORIDE
     Dosage: 5000 MG/ 7 DAYS
     Route: 042
     Dates: start: 20150708, end: 20150715
  4. EFFENTORA [Concomitant]
     Active Substance: FENTANYL CITRATE
     Indication: CANCER PAIN
     Dosage: UNK
     Route: 065
  5. OXYCONTIN [Concomitant]
     Active Substance: OXYCODONE HYDROCHLORIDE
     Indication: CANCER PAIN
     Dosage: 120 MG, BID
     Route: 065
  6. OXYNORM SOLUTION INJECTABLE [Suspect]
     Active Substance: OXYCODONE HYDROCHLORIDE
     Dosage: 37 MG, Q1H
     Route: 065
     Dates: start: 20150803, end: 20150810
  7. OXYNORM SOLUTION INJECTABLE [Suspect]
     Active Substance: OXYCODONE HYDROCHLORIDE
     Dosage: 33 MG, Q1H
     Route: 065
     Dates: start: 20150722, end: 20150803
  8. OXYNORM SOLUTION INJECTABLE [Suspect]
     Active Substance: OXYCODONE HYDROCHLORIDE
     Dosage: 5000 MG/ 7 DAYS
     Route: 042
     Dates: start: 20150715, end: 20150722
  9. OXYNORM SOLUTION INJECTABLE [Suspect]
     Active Substance: OXYCODONE HYDROCHLORIDE
     Dosage: 39 MG, Q1H
     Route: 065
     Dates: start: 20150810

REACTIONS (4)
  - Nausea [Recovered/Resolved]
  - Vomiting [Recovered/Resolved]
  - General physical condition abnormal [Recovered/Resolved]
  - Death [Fatal]
